FAERS Safety Report 25434903 (Version 3)
Quarter: 2025Q3

REPORT INFORMATION
  Report Type: Report from Study
  Country: CO (occurrence: CO)
  Receive Date: 20250613
  Receipt Date: 20250814
  Transmission Date: 20251021
  Serious: Yes (Other)
  Sender: TAKEDA
  Company Number: CO-TAKEDA-2025TUS054568

PATIENT
  Age: 11 Year
  Sex: Male
  Weight: 42.5 kg

DRUGS (3)
  1. ADVATE [Suspect]
     Active Substance: ANTIHEMOPHILIC FACTOR, HUMAN RECOMBINANT
     Indication: Factor VIII deficiency
  2. ADVATE [Suspect]
     Active Substance: ANTIHEMOPHILIC FACTOR, HUMAN RECOMBINANT
  3. ADVATE [Suspect]
     Active Substance: ANTIHEMOPHILIC FACTOR, HUMAN RECOMBINANT

REACTIONS (8)
  - Wound haemorrhage [Recovering/Resolving]
  - Haemarthrosis [Recovered/Resolved]
  - Heat oedema [Recovering/Resolving]
  - Musculoskeletal pain [Recovered/Resolved]
  - Feeling hot [Recovered/Resolved]
  - Oedema [Recovered/Resolved]
  - Arthralgia [Recovered/Resolved]
  - Limb injury [Recovering/Resolving]

NARRATIVE: CASE EVENT DATE: 20250608
